FAERS Safety Report 9746513 (Version 2)
Quarter: 2014Q1

REPORT INFORMATION
  Report Type: Spontaneous
  Country: US (occurrence: US)
  Receive Date: 20131211
  Receipt Date: 20140113
  Transmission Date: 20141002
  Serious: Yes (Other)
  Sender: FDA-Public Use
  Company Number: US-GILEAD-2013-0089695

PATIENT
  Sex: Female

DRUGS (1)
  1. LETAIRIS [Suspect]
     Indication: PRODUCT USED FOR UNKNOWN INDICATION
     Dosage: 5 MG, QD
     Route: 048
     Dates: start: 20120914

REACTIONS (6)
  - Syncope [Unknown]
  - Loss of consciousness [Unknown]
  - Dyspnoea [Unknown]
  - Oedema [Unknown]
  - Oedema [Unknown]
  - Fatigue [Unknown]
